FAERS Safety Report 4753260-1 (Version None)
Quarter: 2005Q3

REPORT INFORMATION
  Report Type: 
  Country: None (occurrence: None)
  Receive Date: 20050824
  Receipt Date: 20050811
  Transmission Date: 20060218
  Serious: Yes (Hospitalization)
  Sender: FDA-Public Use
  Company Number: 2005US001101

PATIENT
  Age: 50 Year
  Sex: Male

DRUGS (13)
  1. PROGRAF [Suspect]
     Indication: PROPHYLAXIS AGAINST TRANSPLANT REJECTION
     Dosage: 4 MG, BID, ORAL
     Route: 048
     Dates: start: 20050131
  2. MYCOPHENOLATE MOFETIL (MYCOPHENOLATE MOFETIL) [Suspect]
     Indication: PROPHYLAXIS AGAINST TRANSPLANT REJECTION
     Dosage: 1000.00 MG, BID, ORAL
     Route: 048
     Dates: start: 20050124
  3. PREDNISONE [Suspect]
     Indication: PROPHYLAXIS AGAINST TRANSPLANT REJECTION
     Dosage: 30 MG, UID/QD. ORAL
     Route: 048
     Dates: start: 20050130
  4. TOPROL-XL [Concomitant]
  5. CLONIDINE [Concomitant]
  6. PROTONIX [Concomitant]
  7. ASPIRIN [Concomitant]
  8. ELAVIL [Concomitant]
  9. LANTUS [Concomitant]
  10. ACYCLOVIR [Concomitant]
  11. FLOMAX 9TAMSULOSIN HYDROCHLORIDE) [Concomitant]
  12. MVI (VITAMINS NOS) [Concomitant]
  13. LIPITOR [Concomitant]

REACTIONS (5)
  - DIZZINESS [None]
  - NECROSIS ISCHAEMIC [None]
  - OSTEOMYELITIS [None]
  - SYNCOPE [None]
  - TOE AMPUTATION [None]
